APPROVED DRUG PRODUCT: COUMADIN
Active Ingredient: WARFARIN SODIUM
Strength: 50MG/VIAL
Dosage Form/Route: INJECTABLE;INJECTION
Application: N009218 | Product #020
Applicant: BRISTOL MYERS SQUIBB PHARMA CO
Approved: Approved Prior to Jan 1, 1982 | RLD: No | RS: No | Type: DISCN